FAERS Safety Report 17945691 (Version 5)
Quarter: 2020Q4

REPORT INFORMATION
  Report Type: Spontaneous
  Country: JP (occurrence: JP)
  Receive Date: 20200626
  Receipt Date: 20201001
  Transmission Date: 20210113
  Serious: Yes (Hospitalization, Other)
  Sender: FDA-Public Use
  Company Number: JP-TAKEDA-2020TJP012453

PATIENT
  Age: 26 Year
  Sex: Female
  Weight: 45 kg

DRUGS (6)
  1. ASACOL [Concomitant]
     Active Substance: MESALAMINE
     Indication: COLITIS ULCERATIVE
     Dosage: 800 MILLIGRAM, TID
     Route: 048
     Dates: start: 20121031
  2. BIOFERMIN                          /07746301/ [Concomitant]
     Indication: COLITIS ULCERATIVE
     Dosage: 2 DOSAGE FORM, TID
     Route: 048
     Dates: start: 20121031
  3. ALLOPURINOL. [Concomitant]
     Active Substance: ALLOPURINOL
     Indication: COLITIS ULCERATIVE
     Dosage: 50 MILLIGRAM, QD
     Route: 048
     Dates: start: 20160701
  4. ENTYVIO [Suspect]
     Active Substance: VEDOLIZUMAB
     Indication: COLITIS ULCERATIVE
     Dosage: 300 MILLIGRAM, Q8WEEKS
     Route: 041
     Dates: start: 20181128
  5. LEUKERIN [Suspect]
     Active Substance: MERCAPTOPURINE
     Indication: COLITIS ULCERATIVE
     Dosage: 0.2 GRAM, QD
     Route: 048
     Dates: start: 20160701
  6. BIO-THREE [Concomitant]
     Active Substance: HERBALS
     Indication: COLITIS ULCERATIVE
     Dosage: 2 DOSAGE FORM, TID
     Route: 048
     Dates: start: 20160701

REACTIONS (3)
  - Enteritis infectious [Recovered/Resolved]
  - Myelodysplastic syndrome [Not Recovered/Not Resolved]
  - Colitis ulcerative [Recovered/Resolved]

NARRATIVE: CASE EVENT DATE: 20200616
